FAERS Safety Report 9704543 (Version 3)
Quarter: 2014Q2

REPORT INFORMATION
  Report Type: Report from Study
  Country: US (occurrence: US)
  Receive Date: 20131122
  Receipt Date: 20140505
  Transmission Date: 20141212
  Serious: Yes (Hospitalization)
  Sender: FDA-Public Use
  Company Number: US-ROCHE-1307389

PATIENT
  Age: 79 Year
  Sex: Female
  Weight: 59.02 kg

DRUGS (4)
  1. LUCENTIS [Suspect]
     Indication: AGE-RELATED MACULAR DEGENERATION
     Dosage: LEFT EYE
     Route: 050
     Dates: start: 20131003
  2. SYNTHROID [Concomitant]
     Indication: HYPOTHYROIDISM
     Route: 048
  3. PREMARIN [Concomitant]
     Indication: HYSTERECTOMY
     Route: 048
  4. VITAMIN B12 [Concomitant]
     Dosage: 1CC
     Route: 065

REACTIONS (4)
  - Cerebrovascular accident [Unknown]
  - Visual acuity reduced [Not Recovered/Not Resolved]
  - Photosensitivity reaction [Recovering/Resolving]
  - Cerebrovascular accident [Unknown]
